FAERS Safety Report 18174635 (Version 1)
Quarter: 2020Q3

REPORT INFORMATION
  Report Type: Spontaneous
  Country: US (occurrence: US)
  Receive Date: 20200820
  Receipt Date: 20200820
  Transmission Date: 20201103
  Serious: No
  Sender: FDA-Public Use
  Company Number: US-PFIZER INC-2019561448

PATIENT
  Age: 57 Year
  Sex: Male
  Weight: 99.79 kg

DRUGS (2)
  1. PHENYTOIN SODIUM. [Suspect]
     Active Substance: PHENYTOIN SODIUM
     Indication: VENOUS ANGIOMA OF BRAIN
     Dosage: 200 MG, 2X/DAY
     Route: 048
  2. PHENYTOIN SODIUM. [Suspect]
     Active Substance: PHENYTOIN SODIUM
     Indication: SEIZURE

REACTIONS (2)
  - Headache [Recovered/Resolved]
  - Hypertension [Unknown]
